FAERS Safety Report 6197078-4 (Version None)
Quarter: 2009Q2

REPORT INFORMATION
  Report Type: 
  Country: None (occurrence: None)
  Receive Date: 20090518
  Receipt Date: 20090518
  Transmission Date: 20091009
  Serious: Yes (Hospitalization)
  Sender: FDA-Public Use
  Company Number: None

PATIENT
  Age: 64 Year
  Sex: Male

DRUGS (8)
  1. TADALAFIL 10 MG [Suspect]
     Indication: SQUAMOUS CELL CARCINOMA
     Dosage: 10 MG ONCE PER DAY ORAL
     Route: 048
     Dates: start: 20090106, end: 20090125
  2. SEROQUEL [Concomitant]
  3. MORPHINE SULFATE [Concomitant]
  4. FOLIC ACID [Concomitant]
  5. REMERON [Concomitant]
  6. HYDROCODONE [Concomitant]
  7. BUPROPIN [Concomitant]
  8. SPIRONOLACTONE [Concomitant]

REACTIONS (4)
  - ORAL CAVITY FISTULA [None]
  - PURULENT DISCHARGE [None]
  - WOUND DEHISCENCE [None]
  - WOUND NECROSIS [None]
